FAERS Safety Report 11921281 (Version 5)
Quarter: 2016Q1

REPORT INFORMATION
  Report Type: Spontaneous
  Country: IT (occurrence: IT)
  Receive Date: 20160115
  Receipt Date: 20160222
  Transmission Date: 20160526
  Serious: Yes (Death, Hospitalization, Other)
  Sender: FDA-Public Use
  Company Number: IT-009507513-1601ITA004503

PATIENT
  Age: 54 Year
  Sex: Female

DRUGS (7)
  1. CALCIUM SANDOZ (CALCIUM CARBONATE (+) CALCIUM LACTATE GLUCONATE) [Concomitant]
     Dosage: UNK
  2. LUVION (CANRENONE) [Concomitant]
     Active Substance: CANRENONE
     Dosage: UNK
  3. REBETOL [Suspect]
     Active Substance: RIBAVIRIN
     Indication: CHRONIC HEPATITIS C
     Dosage: 1000 MG, DAILY
     Route: 048
     Dates: start: 20150401, end: 20150722
  4. LASIX [Concomitant]
     Active Substance: FUROSEMIDE
     Dosage: UNK
  5. SOVALDI [Suspect]
     Active Substance: SOFOSBUVIR
     Indication: CHRONIC HEPATITIS C
     Dosage: 400 MG, DAILY
     Route: 048
     Dates: start: 20150401, end: 20150722
  6. CARVEDILOL. [Concomitant]
     Active Substance: CARVEDILOL
     Indication: VARICES OESOPHAGEAL
     Dosage: UNK
  7. LEVOPRAID [Concomitant]
     Active Substance: SULPIRIDE
     Dosage: UNK

REACTIONS (3)
  - Anaemia [Recovering/Resolving]
  - Anaemia [Recovering/Resolving]
  - Oesophageal varices haemorrhage [Fatal]

NARRATIVE: CASE EVENT DATE: 20150501
